FAERS Safety Report 20086475 (Version 1)
Quarter: 2021Q4

REPORT INFORMATION
  Report Type: Spontaneous
  Country: CN (occurrence: CN)
  Receive Date: 20211118
  Receipt Date: 20211118
  Transmission Date: 20220303
  Serious: Yes (Other)
  Sender: FDA-Public Use
  Company Number: CN-PFIZER INC-202101558102

PATIENT
  Age: 24 Year
  Sex: Female

DRUGS (1)
  1. METHOTREXATE [Suspect]
     Active Substance: METHOTREXATE
     Indication: Abortion of ectopic pregnancy
     Dosage: 63 MG, ALTERNATE DAY
     Route: 030
     Dates: start: 20211028, end: 20211101

REACTIONS (3)
  - Rash pruritic [Recovering/Resolving]
  - Exfoliative rash [Recovering/Resolving]
  - Off label use [Unknown]

NARRATIVE: CASE EVENT DATE: 20211028
